FAERS Safety Report 9607265 (Version 2)
Quarter: 2013Q4

REPORT INFORMATION
  Report Type: Report from Study
  Country: CO (occurrence: CO)
  Receive Date: 20131009
  Receipt Date: 20131009
  Transmission Date: 20140711
  Serious: Yes (Other)
  Sender: FDA-Public Use
  Company Number: CO-ROCHE-1285163

PATIENT
  Age: 77 Year
  Sex: Male

DRUGS (2)
  1. LUCENTIS [Suspect]
     Indication: MACULAR DEGENERATION
     Dosage: 1 DF
     Route: 050
  2. LOSARTAN [Concomitant]

REACTIONS (2)
  - Limb injury [Recovering/Resolving]
  - Fall [Unknown]
